FAERS Safety Report 5774681-4 (Version None)
Quarter: 2008Q2

REPORT INFORMATION
  Report Type: 
  Country: None (occurrence: None)
  Receive Date: 20080616
  Receipt Date: 20080616
  Transmission Date: 20081010
  Serious: Yes (Other)
  Sender: FDA-Public Use
  Company Number: None

PATIENT
  Sex: Female
  Weight: 60.3284 kg

DRUGS (1)
  1. BUPIVACAINE HCL (0.75%)W/DEXTROSE(82 2M) BDSPINAL ANESTHESIA TRAY [Suspect]
     Indication: HIP ARTHROPLASTY
     Dosage: 2ML SPINAL
     Dates: start: 20080610

REACTIONS (2)
  - ANAESTHETIC COMPLICATION [None]
  - TREATMENT FAILURE [None]
